FAERS Safety Report 11080392 (Version 2)
Quarter: 2015Q2

REPORT INFORMATION
  Report Type: Report from Study
  Country: DE (occurrence: DE)
  Receive Date: 20150430
  Receipt Date: 20150520
  Transmission Date: 20150821
  Serious: Yes (Hospitalization)
  Sender: FDA-Public Use
  Company Number: DE-TEVA-558502GER

PATIENT
  Age: 79 Year
  Sex: Female
  Weight: 71 kg

DRUGS (6)
  1. PACLITAXEL. [Suspect]
     Active Substance: PACLITAXEL
     Indication: BREAST CANCER
     Dosage: 138MG Q1W, LAST DOSE PRIOR TO SAE: 09-APR-2015
     Route: 042
     Dates: start: 20150305
  2. RAMIPRIL 2,5 MG [Concomitant]
     Active Substance: RAMIPRIL
     Dosage: 1.25 MILLIGRAM DAILY;
  3. SIMVASTATIN 10 MG [Concomitant]
     Active Substance: SIMVASTATIN
     Dosage: 10 MILLIGRAM DAILY;
  4. MYOCET [Suspect]
     Active Substance: DOXORUBICIN
     Indication: BREAST CANCER
     Dosage: 100 MG Q3W, LAST DOSE PRIOR TO SAE: 12-FEB-2015
     Route: 042
     Dates: start: 20150122
  5. CYCLOPHOSPHAMIDE. [Suspect]
     Active Substance: CYCLOPHOSPHAMIDE
     Indication: BREAST CANCER
     Dosage: 1026 MG Q3W, LAST DOSE PRIOR TO SAE: 12-FEB-2015
     Route: 042
     Dates: start: 20150122
  6. METOPROLOL 100 MG [Concomitant]
     Dosage: 50 MILLIGRAM DAILY;

REACTIONS (1)
  - Cough [Recovered/Resolved]

NARRATIVE: CASE EVENT DATE: 20150422
